FAERS Safety Report 5278537-5 (Version None)
Quarter: 2007Q1

REPORT INFORMATION
  Report Type: 
  Country: None (occurrence: None)
  Receive Date: 20061213
  Receipt Date: 20050620
  Transmission Date: 20070707
  Serious: No
  Sender: FDA-Public Use
  Company Number: 2005UW09462

PATIENT
  Age: 34 Year
  Sex: Male

DRUGS (9)
  1. SEROQUEL [Suspect]
  2. SEROQUEL [Suspect]
     Dosage: 100 MG PO
     Route: 048
  3. SEROQUEL [Suspect]
     Dosage: 200 MG PO
     Route: 048
  4. SEROQUEL [Suspect]
     Dosage: 300 MG PO
     Route: 048
  5. SEROQUEL [Suspect]
     Dosage: PERHAPS 800 OR 900 PER DAY
  6. DEPAKOTE [Concomitant]
  7. GEODON [Concomitant]
  8. PAXIL [Concomitant]
  9. WELLBUTRIN [Concomitant]

REACTIONS (3)
  - ANXIETY [None]
  - GRAND MAL CONVULSION [None]
  - OVERDOSE [None]
